FAERS Safety Report 5499939-8 (Version None)
Quarter: 2007Q4

REPORT INFORMATION
  Report Type: 
  Country: None (occurrence: None)
  Receive Date: 20071026
  Receipt Date: 20071018
  Transmission Date: 20080405
  Serious: Yes (Other)
  Sender: FDA-Public Use
  Company Number: ES-ABBOTT-07P-144-0421180-00

PATIENT
  Age: 35 Year
  Sex: Male

DRUGS (5)
  1. DEPAKENE [Suspect]
     Indication: GRAND MAL CONVULSION
     Route: 048
     Dates: start: 20070901, end: 20071001
  2. DEPAKENE [Suspect]
     Route: 048
     Dates: start: 19970101, end: 20070901
  3. DEPAKENE [Suspect]
     Route: 048
     Dates: start: 20071001
  4. FOLIC ACID [Concomitant]
     Indication: DRUG USE FOR UNKNOWN INDICATION
  5. FISH OIL [Concomitant]
     Indication: DRUG USE FOR UNKNOWN INDICATION

REACTIONS (4)
  - DRUG INEFFECTIVE [None]
  - DRY MOUTH [None]
  - EPILEPSY [None]
  - MUSCLE SPASMS [None]
